FAERS Safety Report 23069349 (Version 1)
Quarter: 2023Q4

REPORT INFORMATION
  Report Type: Spontaneous
  Country: US (occurrence: None)
  Receive Date: 20231016
  Receipt Date: 20231016
  Transmission Date: 20240110
  Serious: No
  Sender: FDA-Public Use
  Company Number: None

PATIENT
  Age: 42 Year
  Sex: Female
  Weight: 78.75 kg

DRUGS (8)
  1. DYSPORT [Suspect]
     Active Substance: ABOBOTULINUMTOXINA
     Indication: Skin wrinkling
  2. WELLBUTRIN [Concomitant]
     Active Substance: BUPROPION HYDROCHLORIDE
  3. MINOXIDIL [Concomitant]
     Active Substance: MINOXIDIL
  4. VITAMINS [Concomitant]
     Active Substance: VITAMINS
  5. viviscal pro [Concomitant]
  6. BIOTIN [Concomitant]
     Active Substance: BIOTIN
  7. GLUCOSAMINE [Concomitant]
     Active Substance: GLUCOSAMINE
  8. HERBALS [Concomitant]
     Active Substance: HERBALS

REACTIONS (1)
  - Dry eye [None]

NARRATIVE: CASE EVENT DATE: 20231011
